FAERS Safety Report 16278579 (Version 1)
Quarter: 2019Q2

REPORT INFORMATION
  Report Type: Spontaneous
  Country: US (occurrence: US)
  Receive Date: 20190506
  Receipt Date: 20190506
  Transmission Date: 20190711
  Serious: No
  Sender: FDA-Public Use
  Company Number: US-BAUSCH-BL-2019-012236

PATIENT
  Age: 82 Year
  Sex: Female
  Weight: 62.65 kg

DRUGS (3)
  1. SOOTHE PRESERVATIVE FREE LUBRICANT EYE DROPS (GLYCERIN\PROPYLENE GLYCOL) [Suspect]
     Active Substance: GLYCERIN\PROPYLENE GLYCOL
     Indication: DRY EYE
     Dosage: ONE OR TWO DROPS INSTILLED IN EACH EYE AS NEEDED, ONE OR TWO MONTHS AGO
     Route: 047
     Dates: start: 2019, end: 201904
  2. SYSTANE (HYPROMELLOSE 2910 (4000 MPA.S)) [Suspect]
     Active Substance: HYPROMELLOSE 2910 (4000 MPA.S)
     Indication: PRODUCT USED FOR UNKNOWN INDICATION
     Route: 047
     Dates: start: 201903, end: 2019
  3. PREDNISOLONE SODIUM PHOSPHATE OPHTHALMIC SOLUTION USP 1% [Suspect]
     Active Substance: PREDNISOLONE SODIUM PHOSPHATE
     Indication: PRODUCT USED FOR UNKNOWN INDICATION
     Route: 047
     Dates: start: 2019, end: 2019

REACTIONS (5)
  - Dizziness [Unknown]
  - Bronchitis [Unknown]
  - Blood pressure increased [Unknown]
  - Eye irritation [Recovered/Resolved]
  - Eye pruritus [Recovered/Resolved]

NARRATIVE: CASE EVENT DATE: 2019
